FAERS Safety Report 12486940 (Version 1)
Quarter: 2016Q2

REPORT INFORMATION
  Report Type: Spontaneous
  Country: US (occurrence: None)
  Receive Date: 20160621
  Receipt Date: 20160621
  Transmission Date: 20160815
  Serious: Yes (Other)
  Sender: FDA-Public Use
  Company Number: None

PATIENT
  Age: 42 Year
  Sex: Female

DRUGS (2)
  1. MOTRIN [Suspect]
     Active Substance: IBUPROFEN
     Indication: CAUDA EQUINA SYNDROME
     Route: 048
     Dates: end: 20140601
  2. NAPROSYN [Suspect]
     Active Substance: NAPROXEN
     Indication: CAUDA EQUINA SYNDROME
     Route: 048
     Dates: end: 20140601

REACTIONS (1)
  - Gastric ulcer [None]

NARRATIVE: CASE EVENT DATE: 20140601
